FAERS Safety Report 20009813 (Version 1)
Quarter: 2021Q4

REPORT INFORMATION
  Report Type: Spontaneous
  Country: US (occurrence: US)
  Receive Date: 20211029
  Receipt Date: 20211029
  Transmission Date: 20220303
  Serious: Yes (Life-Threatening, Hospitalization)
  Sender: FDA-Public Use
  Company Number: US-DRREDDYS-SPO/USA/21/0143037

PATIENT
  Age: 48 Year
  Sex: Male

DRUGS (1)
  1. AMIODARONE HYDROCHLORIDE [Suspect]
     Active Substance: AMIODARONE HYDROCHLORIDE
     Indication: Product used for unknown indication

REACTIONS (5)
  - Stress cardiomyopathy [Recovered/Resolved]
  - Thyrotoxic periodic paralysis [Recovered/Resolved]
  - Ventricular arrhythmia [Recovered/Resolved]
  - Hyperthyroidism [Recovered/Resolved]
  - Hypokalaemia [Recovered/Resolved]
